FAERS Safety Report 20701552 (Version 5)
Quarter: 2025Q1

REPORT INFORMATION
  Report Type: Spontaneous
  Country: US (occurrence: US)
  Receive Date: 20220412
  Receipt Date: 20250226
  Transmission Date: 20250409
  Serious: Yes (Hospitalization)
  Sender: PFIZER
  Company Number: US-PFIZER INC-202101070652

PATIENT
  Age: 72 Year
  Sex: Female
  Weight: 63.492 kg

DRUGS (6)
  1. IBRANCE [Suspect]
     Active Substance: PALBOCICLIB
     Indication: Breast cancer female
     Dates: start: 20210127
  2. IBRANCE [Suspect]
     Active Substance: PALBOCICLIB
     Dates: start: 202105
  3. IBRANCE [Suspect]
     Active Substance: PALBOCICLIB
     Route: 048
     Dates: start: 20241118
  4. ARIMIDEX [Concomitant]
     Active Substance: ANASTROZOLE
     Dates: start: 202001
  5. METHYL B COMPLEX [Concomitant]
  6. CHOLECALCIFEROL [Concomitant]
     Active Substance: CHOLECALCIFEROL

REACTIONS (8)
  - Lacrimation increased [Unknown]
  - Vision blurred [Recovered/Resolved]
  - Pollakiuria [Not Recovered/Not Resolved]
  - White blood cell count decreased [Not Recovered/Not Resolved]
  - Peripheral swelling [Unknown]
  - Dry eye [Unknown]
  - Balance disorder [Unknown]
  - Dysphagia [Recovered/Resolved]
